FAERS Safety Report 5401204-1 (Version None)
Quarter: 2007Q3

REPORT INFORMATION
  Report Type: 
  Country: None (occurrence: None)
  Receive Date: 20070726
  Receipt Date: 20070715
  Transmission Date: 20080115
  Serious: Yes (Death, Other)
  Sender: FDA-Public Use
  Company Number: 07H-163-0312892-00

PATIENT
  Age: 8 Month
  Sex: Female
  Weight: 6 kg

DRUGS (4)
  1. AMIDATE [Suspect]
     Indication: INDUCTION OF ANAESTHESIA
     Dosage: 2 MG, INTRAVENOUS
     Route: 042
  2. FENTANYL CITRATE [Suspect]
     Indication: INDUCTION OF ANAESTHESIA
     Dosage: 15 MCG, INTRAVENOUS
     Route: 042
  3. ROCURONIUM (ROCURONIUM) [Suspect]
     Indication: NEUROMUSCULAR BLOCKADE
     Dosage: 4 MG, INTRAVENOUS
     Route: 042
  4. FLUIDS (PARENTERAL) [Concomitant]

REACTIONS (3)
  - BLOOD PRESSURE DECREASED [None]
  - CARDIAC DISORDER [None]
  - VENTRICULAR FIBRILLATION [None]
